FAERS Safety Report 7893817-2 (Version None)
Quarter: 2011Q4

REPORT INFORMATION
  Report Type: 
  Country: None (occurrence: None)
  Receive Date: 20111104
  Receipt Date: 20111031
  Transmission Date: 20120403
  Serious: Yes (Hospitalization)
  Sender: FDA-Public Use
  Company Number: JP-B.I. PHARMACEUTICALS,INC./RIDGEFIELD-2011-BP-25371NB

PATIENT
  Age: 77 Year
  Sex: Male

DRUGS (2)
  1. MICARDIS [Suspect]
     Dosage: 20 MG
     Route: 048
  2. MICARDIS [Suspect]
     Indication: HYPERTENSION
     Dosage: 40 MG
     Route: 048
     Dates: start: 20111015, end: 20111026

REACTIONS (5)
  - DECREASED APPETITE [None]
  - FALL [None]
  - FRACTURE [None]
  - DIZZINESS [None]
  - OVERDOSE [None]
